FAERS Safety Report 4989826-3 (Version None)
Quarter: 2006Q2

REPORT INFORMATION
  Report Type: 
  Country: None (occurrence: None)
  Receive Date: 20060501
  Receipt Date: 20060427
  Transmission Date: 20061013
  Serious: Yes (Other)
  Sender: FDA-Public Use
  Company Number: HQWYE502604MAY05

PATIENT
  Age: 30 Year
  Sex: Female

DRUGS (1)
  1. ADVIL [Suspect]
     Dosage: 1 CAPSULE 1X PER 1 DAY ORAL
     Route: 048
     Dates: start: 20050426, end: 20050427

REACTIONS (2)
  - ABORTION SPONTANEOUS [None]
  - DRUG EXPOSURE DURING PREGNANCY [None]
